FAERS Safety Report 17213942 (Version 1)
Quarter: 2019Q4

REPORT INFORMATION
  Report Type: Spontaneous
  Country: US (occurrence: US)
  Receive Date: 20191230
  Receipt Date: 20191230
  Transmission Date: 20200122
  Serious: No
  Sender: FDA-Public Use
  Company Number: US-PFIZER INC-2019554757

PATIENT
  Age: 38 Year
  Sex: Male
  Weight: 98.43 kg

DRUGS (3)
  1. TRAZODONE [Concomitant]
     Active Substance: TRAZODONE HYDROCHLORIDE
     Dosage: 50 MG, UNK
  2. LYRICA [Suspect]
     Active Substance: PREGABALIN
     Dosage: 150 MG, 2X/DAY(TAKE TWO AT NIGHT TIME , AND ONE IN THE MORNING)
  3. LYRICA [Suspect]
     Active Substance: PREGABALIN
     Indication: FIBROMYALGIA
     Dosage: 150 MG, 2X/DAY(TWO 150MG A DAY; ONE IN THE MORNING AND ONE AT NIGHT   )
     Dates: start: 2018

REACTIONS (1)
  - Insomnia [Recovering/Resolving]
